FAERS Safety Report 7730720-2 (Version None)
Quarter: 2011Q3

REPORT INFORMATION
  Report Type: 
  Country: None (occurrence: None)
  Receive Date: 20110906
  Receipt Date: 20110826
  Transmission Date: 20111222
  Serious: Yes (Death, Life-Threatening, Hospitalization)
  Sender: FDA-Public Use
  Company Number: RU-GLAXOSMITHKLINE-B0678504A

PATIENT
  Age: 9 Year
  Sex: Male

DRUGS (8)
  1. CYCLOPHOSPHAMIDE [Concomitant]
     Dates: start: 20100501, end: 20100701
  2. DAUNORUBICIN HCL [Suspect]
     Indication: ACUTE LYMPHOCYTIC LEUKAEMIA
     Route: 065
  3. PEG-ASPARAGINASE [Concomitant]
  4. VINCRISTINE [Suspect]
     Indication: ACUTE LYMPHOCYTIC LEUKAEMIA
     Route: 065
  5. ATRIANCE [Suspect]
     Indication: LYMPHOCYTIC LEUKAEMIA
     Route: 065
     Dates: start: 20100501, end: 20100701
  6. DEXAMETHASONE [Suspect]
     Indication: ACUTE LYMPHOCYTIC LEUKAEMIA
     Route: 065
  7. CYTARABINE [Concomitant]
     Indication: LYMPHOCYTIC LEUKAEMIA
     Dates: start: 20100501, end: 20100701
  8. ETOPOSIDE [Concomitant]

REACTIONS (16)
  - CARDIAC FAILURE [None]
  - COUGH [None]
  - RALES [None]
  - SEPSIS [None]
  - INTERNATIONAL NORMALISED RATIO INCREASED [None]
  - ACUTE GRAFT VERSUS HOST DISEASE [None]
  - HYPOTENSION [None]
  - HAEMOGLOBIN DECREASED [None]
  - PLATELET COUNT DECREASED [None]
  - FEBRILE NEUTROPENIA [None]
  - PULMONARY HYPERTENSION [None]
  - CARDIOMYOPATHY [None]
  - COMA [None]
  - PNEUMONIA [None]
  - HEPATITIS TOXIC [None]
  - PROTHROMBIN LEVEL DECREASED [None]
